FAERS Safety Report 9718956 (Version 1)
Quarter: 2013Q4

REPORT INFORMATION
  Report Type: Spontaneous
  Country: US (occurrence: None)
  Receive Date: 20131125
  Receipt Date: 20131125
  Transmission Date: 20140711
  Serious: Yes (Hospitalization)
  Sender: FDA-Public Use
  Company Number: UTC-040747

PATIENT
  Age: 62 Year
  Sex: Female
  Weight: 109 kg

DRUGS (13)
  1. TYVASO [Suspect]
     Indication: PULMONARY ARTERIAL HYPERTENSION
     Dosage: 9.6 MG (2.4 MG,4 IN 1 D), INHALATION
     Dates: start: 20130408, end: 201310
  2. LETAIRIS [Suspect]
     Indication: PULMONARY ARTERIAL HYPERTENSION
     Dosage: 10 MG (10 MG,1 IN 1 D) ,ORAL
     Route: 048
     Dates: start: 20111104
  3. ADCIRCA (TADALAFIL) (UNKNOWN) [Concomitant]
  4. SYNTHROID (LEVOTHYROXINE) [Concomitant]
  5. HYDROCHLOROTHIAZIDE (UNKNOWN) [Concomitant]
  6. CALCIUM (UNKNOWN) [Concomitant]
  7. XANAX (ALPRAZOLAM) (UNKNOWN) [Concomitant]
  8. COUMADIN (WARFARIN SODIUM) (UNKNOWN) [Concomitant]
  9. TRAMADOL (UNKNOWN) [Concomitant]
  10. PRILOSEC (OMEPRAZOLE) (UNKNOWN) [Concomitant]
  11. ZOFRAN (ONDANSETRON) (UNKNOWN) [Concomitant]
  12. TYLENOL (PARACETAMOL) (UNKNOWN) [Concomitant]
  13. DIGOXIN (UNKNOWN) [Concomitant]

REACTIONS (9)
  - Heart rate increased [None]
  - Tachycardia [None]
  - Atrial flutter [None]
  - Accelerated idioventricular rhythm [None]
  - Hypertension [None]
  - Hypoxia [None]
  - Acute respiratory failure [None]
  - Nausea [None]
  - Abdominal pain [None]
